FAERS Safety Report 7121397-8 (Version None)
Quarter: 2010Q4

REPORT INFORMATION
  Report Type: 
  Country: None (occurrence: None)
  Receive Date: 20101124
  Receipt Date: 20101119
  Transmission Date: 20110411
  Serious: Yes (Disabling)
  Sender: FDA-Public Use
  Company Number: US-BAYER-201041987NA

PATIENT
  Age: 51 Year
  Sex: Female

DRUGS (4)
  1. AVELOX [Suspect]
     Indication: INFECTION
     Dosage: TOTAL DAILY DOSE: 400 MG  UNIT DOSE: 400 MG
     Route: 048
     Dates: start: 20100921, end: 20100922
  2. UNKNOWN DRUG [Concomitant]
     Indication: HYPOTHYROIDISM
  3. ZYRTEC [Concomitant]
  4. BENADRYL [Concomitant]

REACTIONS (4)
  - MUSCLE SPASMS [None]
  - NEURALGIA [None]
  - ORTHOSTATIC HYPOTENSION [None]
  - VENTRICULAR EXTRASYSTOLES [None]
